FAERS Safety Report 6179655-X (Version None)
Quarter: 2009Q2

REPORT INFORMATION
  Report Type: 
  Country: None (occurrence: None)
  Receive Date: 20090505
  Receipt Date: 20090423
  Transmission Date: 20091009
  Serious: Yes (Other)
  Sender: FDA-Public Use
  Company Number: PHHY2009GB15365

PATIENT
  Sex: Male

DRUGS (4)
  1. CLOZARIL [Suspect]
     Indication: SCHIZOPHRENIA
     Dosage: UNK
     Dates: start: 20081210, end: 20090413
  2. STELAZINE [Concomitant]
  3. BENZODIAZEPINE DERIVATIVES [Concomitant]
  4. LITHIUM CARBONATE [Concomitant]

REACTIONS (5)
  - AGRANULOCYTOSIS [None]
  - INSOMNIA [None]
  - NEUTROPENIA [None]
  - PSYCHOTIC DISORDER [None]
  - WHITE BLOOD CELL COUNT DECREASED [None]
